FAERS Safety Report 4455494-2 (Version None)
Quarter: 2004Q3

REPORT INFORMATION
  Report Type: 
  Country: None (occurrence: None)
  Receive Date: 20040917
  Receipt Date: 20040909
  Transmission Date: 20050211
  Serious: Yes (Death)
  Sender: FDA-Public Use
  Company Number: US-JNJFOC-20040804813

PATIENT
  Age: 45 Year
  Sex: Male
  Weight: 75.2971 kg

DRUGS (3)
  1. FLEXERIL [Suspect]
     Indication: MURDER
  2. CODEINE (CODEINE) [Suspect]
     Indication: MURDER
  3. HYDROCODONE (HYDROCODONE) [Suspect]
     Indication: MURDER

REACTIONS (2)
  - DRUG TOXICITY [None]
  - MURDER [None]
